FAERS Safety Report 13277527 (Version 1)
Quarter: 2017Q1

REPORT INFORMATION
  Report Type: Spontaneous
  Country: JP (occurrence: JP)
  Receive Date: 20170228
  Receipt Date: 20170228
  Transmission Date: 20170428
  Serious: Yes (Hospitalization)
  Sender: FDA-Public Use
  Company Number: JP-HERITAGE PHARMACEUTICALS-2017HTG00040

PATIENT
  Age: 78 Year
  Sex: Male

DRUGS (13)
  1. IRBESARTAN. [Concomitant]
     Active Substance: IRBESARTAN
     Route: 065
  2. ISOSORBIDE DINITRATE. [Concomitant]
     Active Substance: ISOSORBIDE DINITRATE
     Route: 065
  3. NIFEDIPINE. [Suspect]
     Active Substance: NIFEDIPINE
  4. DILTIAZEM. [Suspect]
     Active Substance: DILTIAZEM
  5. CLARITHROMYCIN. [Suspect]
     Active Substance: CLARITHROMYCIN
     Indication: COUGH
  6. CLARITHROMYCIN. [Suspect]
     Active Substance: CLARITHROMYCIN
     Indication: PRODUCTIVE COUGH
  7. CARVEDILOL. [Suspect]
     Active Substance: CARVEDILOL
     Route: 065
  8. RANITIDINE. [Concomitant]
     Active Substance: RANITIDINE
     Route: 065
  9. DYPIRIDAMOLE [Concomitant]
     Route: 065
  10. AZOSEMIDE [Concomitant]
     Active Substance: AZOSEMIDE
     Route: 065
  11. WARFARIN [Concomitant]
     Active Substance: WARFARIN
     Route: 065
  12. SODIUM FERROUS CITRATE [Concomitant]
     Active Substance: SODIUM FERROUS CITRATE
     Route: 065
  13. SITAGLIPTIN [Concomitant]
     Active Substance: SITAGLIPTIN
     Route: 065

REACTIONS (4)
  - Hypotension [Recovered/Resolved]
  - Drug interaction [Recovered/Resolved]
  - Bradycardia [Recovered/Resolved]
  - Loss of consciousness [Recovered/Resolved]
